FAERS Safety Report 21076316 (Version 1)
Quarter: 2022Q3

REPORT INFORMATION
  Report Type: Spontaneous
  Country: IN (occurrence: IN)
  Receive Date: 20220713
  Receipt Date: 20220713
  Transmission Date: 20221027
  Serious: Yes (Other)
  Sender: FDA-Public Use
  Company Number: IN-PFIZER INC-PV202200017207

PATIENT
  Age: 47 Year
  Sex: Female

DRUGS (4)
  1. PALBOCICLIB [Suspect]
     Active Substance: PALBOCICLIB
     Indication: Breast cancer metastatic
     Dosage: 125 MG, 1X/DAY
     Dates: start: 20220517
  2. LETROZOLE [Concomitant]
     Active Substance: LETROZOLE
     Dosage: 2.5 MG, 1X/DAY
     Route: 048
  3. RIBOCICLIB [Concomitant]
     Active Substance: RIBOCICLIB
     Dosage: 600 MG, D1-D21 THEN 7 DAYS OFF
  4. LEUPROLIDE ACETATE [Concomitant]
     Active Substance: LEUPROLIDE ACETATE
     Dosage: 22.5 MG, CYCLIC,Q3M

REACTIONS (5)
  - Haemoglobin abnormal [Unknown]
  - Creatinine urine abnormal [Unknown]
  - Blood creatinine abnormal [Unknown]
  - Off label use [Unknown]
  - Neutrophil count abnormal [Unknown]
